FAERS Safety Report 5694653-8 (Version None)
Quarter: 2008Q2

REPORT INFORMATION
  Report Type: 
  Country: None (occurrence: None)
  Receive Date: 20080404
  Receipt Date: 20080328
  Transmission Date: 20081010
  Serious: Yes (Other)
  Sender: FDA-Public Use
  Company Number: A0718103A

PATIENT
  Age: 17 Year
  Sex: Female

DRUGS (1)
  1. LAMICTAL [Suspect]
     Indication: BIPOLAR DISORDER
     Dosage: 12.5MG TWICE PER DAY
     Route: 048
     Dates: start: 20080301

REACTIONS (5)
  - DISSEMINATED INTRAVASCULAR COAGULATION [None]
  - NEUTROPENIA [None]
  - RASH [None]
  - THROMBOCYTOPENIA [None]
  - TOXIC SHOCK SYNDROME [None]
